FAERS Safety Report 4719433-9 (Version None)
Quarter: 2005Q3

REPORT INFORMATION
  Report Type: 
  Country: None (occurrence: None)
  Receive Date: 20050719
  Receipt Date: 20050711
  Transmission Date: 20060218
  Serious: Yes (Other)
  Sender: FDA-Public Use
  Company Number: ENT 2005-0096

PATIENT
  Age: 76 Year
  Sex: Male

DRUGS (6)
  1. COMTAN [Suspect]
     Indication: PARKINSON'S DISEASE
     Dosage: 600 MG; ORAL
     Route: 048
     Dates: end: 20040722
  2. PERGOLIDE MESYLATE [Suspect]
     Indication: PARKINSON'S DISEASE
     Dosage: 2.2 G; ORAL
     Route: 048
     Dates: end: 20040722
  3. MADOPAR [Suspect]
     Indication: PARKINSON'S DISEASE
     Dosage: 1, 0; ORAL
     Route: 048
  4. AMITRIPTYLINE HCL [Suspect]
     Indication: DEPRESSION
     Dosage: 50 MG; ORAL
     Route: 048
  5. SINEMET [Concomitant]
  6. MODURETIC 5-50 [Concomitant]

REACTIONS (4)
  - CHEST WALL PAIN [None]
  - DYSPNOEA [None]
  - PLEURAL FIBROSIS [None]
  - PULMONARY FIBROSIS [None]
